FAERS Safety Report 6305694-1 (Version None)
Quarter: 2009Q3

REPORT INFORMATION
  Report Type: 
  Country: None (occurrence: None)
  Receive Date: 20090807
  Receipt Date: 20090725
  Transmission Date: 20100115
  Serious: Yes (Other)
  Sender: FDA-Public Use
  Company Number: 238291K09USA

PATIENT
  Age: 28 Year
  Sex: Female

DRUGS (1)
  1. REBIF [Suspect]
     Indication: MULTIPLE SCLEROSIS
     Dosage: 44 MCG, 3 IN 1 WEEKS, SUBCUTANEOUS
     Route: 058
     Dates: start: 20090428

REACTIONS (5)
  - DIARRHOEA HAEMORRHAGIC [None]
  - EATING DISORDER [None]
  - GASTROINTESTINAL PAIN [None]
  - MUSCLE SPASMS [None]
  - WEIGHT DECREASED [None]
